FAERS Safety Report 17075957 (Version 3)
Quarter: 2020Q2

REPORT INFORMATION
  Report Type: Spontaneous
  Country: US (occurrence: US)
  Receive Date: 20191126
  Receipt Date: 20200527
  Transmission Date: 20200713
  Serious: Yes (Hospitalization, Other)
  Sender: FDA-Public Use
  Company Number: US-GILEAD-2019-0439503

PATIENT
  Age: 53 Year
  Sex: Male
  Weight: 91.61 kg

DRUGS (44)
  1. CRESTOR [Concomitant]
     Active Substance: ROSUVASTATIN CALCIUM
  2. AZITHROMYCIN ANHYDROUS. [Concomitant]
     Active Substance: AZITHROMYCIN ANHYDROUS
  3. MAXALT [Concomitant]
     Active Substance: RIZATRIPTAN BENZOATE
  4. IBUPROFEN. [Concomitant]
     Active Substance: IBUPROFEN
  5. CEPHALEXIN HCL [Concomitant]
     Active Substance: CEPHALEXIN HYDROCHLORIDE
  6. ALDACTONE [Concomitant]
     Active Substance: SPIRONOLACTONE
  7. TENORMIN [Concomitant]
     Active Substance: ATENOLOL
  8. PENICILLIN-VK [Concomitant]
     Active Substance: PENICILLIN V POTASSIUM
  9. VIBRAMYCIN [DOXYCYCLINE CALCIUM] [Concomitant]
  10. TRUVADA [Suspect]
     Active Substance: EMTRICITABINE\TENOFOVIR DISOPROXIL FUMARATE
     Indication: HIV INFECTION
     Dosage: UNK
     Route: 048
     Dates: start: 20100706, end: 20140302
  11. ZETIA [Concomitant]
     Active Substance: EZETIMIBE
  12. VIRAMUNE [Concomitant]
     Active Substance: NEVIRAPINE
  13. REQUIP [Concomitant]
     Active Substance: ROPINIROLE HYDROCHLORIDE
  14. ZOVIRAX [Concomitant]
     Active Substance: ACYCLOVIR
  15. GABAPENTIN. [Concomitant]
     Active Substance: GABAPENTIN
  16. ROPINIROLE. [Concomitant]
     Active Substance: ROPINIROLE
  17. LOVAZA [Concomitant]
     Active Substance: OMEGA-3-ACID ETHYL ESTERS
  18. WELLBUTRIN [Concomitant]
     Active Substance: BUPROPION HYDROCHLORIDE
  19. CYMBALTA [Concomitant]
     Active Substance: DULOXETINE HYDROCHLORIDE
  20. ELIQUIS [Concomitant]
     Active Substance: APIXABAN
  21. EPZICOM [Concomitant]
     Active Substance: ABACAVIR SULFATE\LAMIVUDINE
  22. MARINOL [Concomitant]
     Active Substance: DRONABINOL
  23. ALPRAZOLAM. [Concomitant]
     Active Substance: ALPRAZOLAM
  24. HYDROCORT BUTYRATE [Concomitant]
     Active Substance: HYDROCORTISONE BUTYRATE
  25. MORPHINE SULFATE. [Concomitant]
     Active Substance: MORPHINE SULFATE
  26. COLACE [Concomitant]
     Active Substance: DOCUSATE SODIUM
  27. DULOXETINE. [Concomitant]
     Active Substance: DULOXETINE
  28. FLUOROURACIL. [Concomitant]
     Active Substance: FLUOROURACIL
  29. COREG [Concomitant]
     Active Substance: CARVEDILOL
  30. VITAMIN C [Concomitant]
     Active Substance: ASCORBIC ACID
  31. SOMA [Concomitant]
     Active Substance: CARISOPRODOL
  32. OPANA [Concomitant]
     Active Substance: OXYMORPHONE HYDROCHLORIDE
  33. TESTOSTERONE CYPIONATE. [Concomitant]
     Active Substance: TESTOSTERONE CYPIONATE
  34. HYDROCODONE/ACETAMINOPHEN [Concomitant]
     Active Substance: ACETAMINOPHEN\HYDROCODONE
  35. ROSUVASTATIN. [Concomitant]
     Active Substance: ROSUVASTATIN
  36. AMOXICILLIN + CLAV. POTASSIUM [Concomitant]
     Active Substance: AMOXICILLIN\CLAVULANATE POTASSIUM
  37. DOLOPHINE [Concomitant]
     Active Substance: METHADONE HYDROCHLORIDE
  38. NIASPAN [Concomitant]
     Active Substance: NIACIN
  39. VIRAMUNE XR [Concomitant]
     Active Substance: NEVIRAPINE
  40. TRICOR [Concomitant]
     Active Substance: FENOFIBRATE
  41. LOSARTAN. [Concomitant]
     Active Substance: LOSARTAN
  42. FLUTICASONE. [Concomitant]
     Active Substance: FLUTICASONE
  43. CLARITHROMYCIN. [Concomitant]
     Active Substance: CLARITHROMYCIN
  44. VALIUM [Concomitant]
     Active Substance: DIAZEPAM

REACTIONS (11)
  - Cardiac failure [Not Recovered/Not Resolved]
  - Economic problem [Not Recovered/Not Resolved]
  - Anhedonia [Unknown]
  - Chronic kidney disease [Not Recovered/Not Resolved]
  - Osteoporosis [Not Recovered/Not Resolved]
  - Renal failure [Unknown]
  - Pain [Not Recovered/Not Resolved]
  - Emotional distress [Not Recovered/Not Resolved]
  - Anxiety [Unknown]
  - Proteinuria [Unknown]
  - Bone density decreased [Unknown]

NARRATIVE: CASE EVENT DATE: 20110624
